FAERS Safety Report 9665013 (Version 2)
Quarter: 2013Q4

REPORT INFORMATION
  Report Type: Report from Study
  Country: GB (occurrence: GB)
  Receive Date: 20131101
  Receipt Date: 20131126
  Transmission Date: 20140711
  Serious: Yes (Other)
  Sender: FDA-Public Use
  Company Number: GB-TEVA-441403USA

PATIENT
  Age: 78 Year
  Sex: Female
  Weight: 66.2 kg

DRUGS (6)
  1. TREANDA [Suspect]
     Indication: CHRONIC LYMPHOCYTIC LEUKAEMIA
     Dates: start: 20130825, end: 20131010
  2. TREANDA [Suspect]
     Dates: end: 20131108
  3. RITUXIMAB [Suspect]
     Indication: CHRONIC LYMPHOCYTIC LEUKAEMIA
     Dates: start: 20130825, end: 20131010
  4. RITUXIMAB [Suspect]
     Dates: end: 20131108
  5. BLINDED STUDY DRUG [Suspect]
     Indication: CHRONIC LYMPHOCYTIC LEUKAEMIA
     Dates: start: 20130815, end: 20131010
  6. BLINDED STUDY DRUG [Suspect]
     Dates: end: 20131108

REACTIONS (1)
  - Dermatitis exfoliative [Not Recovered/Not Resolved]
